FAERS Safety Report 9610605 (Version 1)
Quarter: 2013Q4

REPORT INFORMATION
  Report Type: Spontaneous
  Country: US (occurrence: US)
  Receive Date: 20131009
  Receipt Date: 20131009
  Transmission Date: 20140711
  Serious: No
  Sender: FDA-Public Use
  Company Number: US-PFIZER INC-2013285827

PATIENT
  Sex: Male

DRUGS (2)
  1. EFFEXOR XR [Suspect]
     Dosage: 225 MG, UNK
  2. CLONIDINE [Suspect]
     Dosage: UNK

REACTIONS (1)
  - Drug screen positive [Unknown]
